FAERS Safety Report 26034397 (Version 1)
Quarter: 2025Q4

REPORT INFORMATION
  Report Type: Spontaneous
  Country: US (occurrence: US)
  Receive Date: 20251112
  Receipt Date: 20251112
  Transmission Date: 20260117
  Serious: No
  Sender: STRIDES
  Company Number: US-STRIDES ARCOLAB LIMITED-2025SP011627

PATIENT
  Age: 57 Year
  Sex: Male

DRUGS (26)
  1. OXYCODONE [Suspect]
     Active Substance: OXYCODONE
     Indication: Cancer pain
     Dosage: 20 MILLIGRAM, EVERY 3 HRS, AS NEEDED BASIS
     Route: 048
  2. OXYCODONE [Suspect]
     Active Substance: OXYCODONE
     Indication: Back pain
  3. AMITRIPTYLINE [Suspect]
     Active Substance: AMITRIPTYLINE
     Indication: Insomnia
     Dosage: 25 MILLIGRAMS, AT BEDTIME
     Route: 048
  4. AMITRIPTYLINE [Suspect]
     Active Substance: AMITRIPTYLINE
     Indication: Neuralgia
  5. PREGABALIN [Suspect]
     Active Substance: PREGABALIN
     Indication: Failed back surgery syndrome
     Dosage: 150 MILLIGRAM, BID
     Route: 048
  6. TOPIRAMATE [Suspect]
     Active Substance: TOPIRAMATE
     Indication: Failed back surgery syndrome
     Dosage: 200 MILLIGRAM, BID
     Route: 048
  7. METHADONE [Suspect]
     Active Substance: METHADONE HYDROCHLORIDE
     Indication: Cancer pain
     Dosage: 50 MILLIGRAM, EVERY 8 HRS
     Route: 048
  8. METHADONE [Suspect]
     Active Substance: METHADONE HYDROCHLORIDE
     Indication: Back pain
  9. HYDROMORPHONE [Suspect]
     Active Substance: HYDROMORPHONE
     Indication: Cancer pain
     Dosage: 8 MILLIGRAM, EVERY 3 HRS AS NEEDED BASIS
     Route: 048
  10. HYDROMORPHONE [Suspect]
     Active Substance: HYDROMORPHONE
     Indication: Back pain
  11. BUPIVACAINE [Concomitant]
     Active Substance: BUPIVACAINE
     Indication: Cancer pain
     Dosage: UNK
     Route: 061
  12. BUPIVACAINE [Concomitant]
     Active Substance: BUPIVACAINE
     Indication: Back pain
  13. CYCLOBENZAPRINE [Concomitant]
     Active Substance: CYCLOBENZAPRINE
     Indication: Cancer pain
     Route: 061
  14. GABAPENTIN [Concomitant]
     Active Substance: GABAPENTIN
     Indication: Cancer pain
     Dosage: UNK
     Route: 061
  15. GABAPENTIN [Concomitant]
     Active Substance: GABAPENTIN
     Indication: Back pain
  16. IMIPRAMINE [Concomitant]
     Active Substance: IMIPRAMINE
     Indication: Cancer pain
     Dosage: UNK
     Route: 061
  17. IMIPRAMINE [Concomitant]
     Active Substance: IMIPRAMINE
     Indication: Back pain
  18. NIFEDIPINE [Concomitant]
     Active Substance: NIFEDIPINE
     Indication: Cancer pain
     Dosage: UNK
     Route: 061
  19. NIFEDIPINE [Concomitant]
     Active Substance: NIFEDIPINE
     Indication: Back pain
  20. BUPIVACAINE [Concomitant]
     Active Substance: BUPIVACAINE
     Indication: Cancer pain
     Dosage: 6.4 MILLIGRAM, QD
     Route: 037
  21. BUPIVACAINE [Concomitant]
     Active Substance: BUPIVACAINE
     Indication: Back pain
  22. FENTANYL [Concomitant]
     Active Substance: FENTANYL
     Indication: Cancer pain
     Dosage: 7.5 MICROGRAM, QD
     Route: 037
  23. KETAMINE [Concomitant]
     Active Substance: KETAMINE
     Indication: Cancer pain
     Dosage: UNK
     Route: 061
  24. KETAMINE [Concomitant]
     Active Substance: KETAMINE
     Indication: Back pain
  25. BUPROPION [Concomitant]
     Active Substance: BUPROPION
     Indication: Affective disorder
     Dosage: 200 MILLIGRAM, BID
     Route: 048
  26. DULOXETINE [Concomitant]
     Active Substance: DULOXETINE
     Indication: Intervertebral disc degeneration
     Dosage: 60 MILLIGRAM, BID
     Route: 048

REACTIONS (5)
  - Sedation [Unknown]
  - Vomiting [Unknown]
  - Constipation [Unknown]
  - Nausea [Unknown]
  - Off label use [Unknown]
